FAERS Safety Report 13418150 (Version 3)
Quarter: 2018Q1

REPORT INFORMATION
  Report Type: Spontaneous
  Country: JP (occurrence: JP)
  Receive Date: 20170406
  Receipt Date: 20180320
  Transmission Date: 20180508
  Serious: Yes (Hospitalization)
  Sender: FDA-Public Use
  Company Number: JP-ABBVIE-17P-087-1935171-00

PATIENT
  Sex: Female

DRUGS (1)
  1. LEUPRORELIN ACETATE [Suspect]
     Active Substance: LEUPROLIDE ACETATE
     Indication: UTERINE LEIOMYOMA
     Dosage: 3.75 MG, Q4WEEKS
     Route: 058

REACTIONS (1)
  - Mitochondrial myopathy [Unknown]

NARRATIVE: CASE EVENT DATE: 20170326
